FAERS Safety Report 4689869-3 (Version None)
Quarter: 2005Q2

REPORT INFORMATION
  Report Type: 
  Country: None (occurrence: None)
  Receive Date: 20050613
  Receipt Date: 20050613
  Transmission Date: 20051028
  Serious: Yes (Disabling)
  Sender: FDA-Public Use
  Company Number: None

PATIENT
  Sex: Female
  Weight: 52.6173 kg

DRUGS (2)
  1. FOSAMAX [Suspect]
     Indication: ARTHROPATHY
     Dosage: 70 MG    ONCE A WEEK   ORAL
     Route: 048
     Dates: start: 20041120, end: 20050423
  2. FOSAMAX [Suspect]
     Indication: OSTEOPENIA
     Dosage: 70 MG    ONCE A WEEK   ORAL
     Route: 048
     Dates: start: 20041120, end: 20050423

REACTIONS (7)
  - ARTHRALGIA [None]
  - DIFFICULTY IN WALKING [None]
  - DYSSTASIA [None]
  - FATIGUE [None]
  - JOINT SWELLING [None]
  - OEDEMA PERIPHERAL [None]
  - PAIN [None]
